FAERS Safety Report 5801942-2 (Version None)
Quarter: 2008Q3

REPORT INFORMATION
  Report Type: 
  Country: None (occurrence: None)
  Receive Date: 20080702
  Receipt Date: 20080619
  Transmission Date: 20090109
  Serious: Yes (Other)
  Sender: FDA-Public Use
  Company Number: 8031676

PATIENT
  Age: 7 Year
  Sex: Male

DRUGS (1)
  1. EQUASYM [Suspect]

REACTIONS (3)
  - ABSCESS NECK [None]
  - EAR INFECTION [None]
  - MENINGITIS [None]
